FAERS Safety Report 6460486-8 (Version None)
Quarter: 2009Q4

REPORT INFORMATION
  Report Type: 
  Country: None (occurrence: None)
  Receive Date: 20091130
  Receipt Date: 20091116
  Transmission Date: 20100525
  Serious: Yes (Other)
  Sender: FDA-Public Use
  Company Number: GB-CELGENEUS-167-20484-09111489

PATIENT
  Sex: Male

DRUGS (12)
  1. INNOHEP [Suspect]
     Route: 064
     Dates: start: 20051207
  2. INNOHEP [Suspect]
     Route: 064
     Dates: start: 20051229, end: 20060215
  3. INNOHEP [Suspect]
     Route: 064
     Dates: start: 20060213
  4. WARFARIN SODIUM [Concomitant]
     Route: 064
     Dates: start: 20051116
  5. DIGOXIN [Concomitant]
     Route: 064
     Dates: start: 20051115
  6. ENALAPRIL MALEATE [Concomitant]
     Route: 064
     Dates: start: 20051115
  7. BETAMETHASONE [Concomitant]
     Route: 064
     Dates: start: 20060502, end: 20060502
  8. AMOXICILLIN [Concomitant]
     Route: 064
     Dates: start: 20060502, end: 20060502
  9. GENTAMICIN [Concomitant]
     Route: 064
     Dates: start: 20060502, end: 20060502
  10. ACETAMINOPHEN AND CODEINE PHOSPHATE [Concomitant]
     Route: 064
     Dates: start: 20060430, end: 20060502
  11. SYNTOMETRINE [Concomitant]
     Route: 064
     Dates: start: 20060502, end: 20060502
  12. SYNTOMETRINE [Concomitant]
     Indication: LABOUR STIMULATION

REACTIONS (2)
  - DRUG EXPOSURE DURING PREGNANCY [None]
  - PREMATURE BABY [None]
